FAERS Safety Report 24438657 (Version 2)
Quarter: 2024Q4

REPORT INFORMATION
  Report Type: Report from Study
  Country: BR (occurrence: BR)
  Receive Date: 20241015
  Receipt Date: 20241023
  Transmission Date: 20250115
  Serious: Yes (Hospitalization)
  Sender: ALNYLAM PHARMACEUTICALS
  Company Number: BR-ALNYLAM PHARMACEUTICALS, INC.-ALN-2024-005692

PATIENT

DRUGS (1)
  1. ONPATTRO [Suspect]
     Active Substance: PATISIRAN SODIUM
     Indication: Hereditary neuropathic amyloidosis
     Dosage: UNK, EVERY 21 DAYS (Q3W) (PRESENTATION: 0.3 MG/KG)
     Route: 042
     Dates: start: 20190508, end: 20190508

REACTIONS (1)
  - Pneumonia [Recovered/Resolved]
